FAERS Safety Report 21044572 (Version 2)
Quarter: 2022Q3

REPORT INFORMATION
  Report Type: Spontaneous
  Country: US (occurrence: US)
  Receive Date: 20220705
  Receipt Date: 20220829
  Transmission Date: 20221026
  Serious: No
  Sender: FDA-Public Use
  Company Number: US-GSKCCFUS-Case-01423423_AE-81819

PATIENT
  Sex: Female

DRUGS (1)
  1. FLOVENT DISKUS [Suspect]
     Active Substance: FLUTICASONE PROPIONATE
     Indication: Product used for unknown indication
     Dosage: 1 PUFF(S), QD, 250MCG
     Route: 055

REACTIONS (4)
  - Extra dose administered [Unknown]
  - Product use issue [Unknown]
  - Drug ineffective [Unknown]
  - Product complaint [Unknown]
